FAERS Safety Report 24094348 (Version 1)
Quarter: 2024Q3

REPORT INFORMATION
  Report Type: Report from Study
  Country: US (occurrence: None)
  Receive Date: 20240716
  Receipt Date: 20240716
  Transmission Date: 20241016
  Serious: Yes (Hospitalization)
  Sender: ASTRAZENECA
  Company Number: 2019SF81793

PATIENT
  Sex: Male

DRUGS (2)
  1. TAGRISSO [Suspect]
     Active Substance: OSIMERTINIB
     Indication: Rectal cancer
     Route: 048
     Dates: start: 20191206
  2. TAGRISSO [Suspect]
     Active Substance: OSIMERTINIB
     Indication: Brain cancer metastatic
     Route: 048
     Dates: start: 20191206

REACTIONS (1)
  - Diverticulitis [Unknown]
